FAERS Safety Report 14364542 (Version 10)
Quarter: 2023Q1

REPORT INFORMATION
  Report Type: Report from Study
  Country: IN (occurrence: IN)
  Receive Date: 20180108
  Receipt Date: 20230207
  Transmission Date: 20230417
  Serious: Yes (Hospitalization, Other)
  Sender: FDA-Public Use
  Company Number: PHHY2017IN158324

PATIENT
  Age: 69 Year
  Sex: Male

DRUGS (37)
  1. SECUKINUMAB [Suspect]
     Active Substance: SECUKINUMAB
     Indication: Psoriasis
     Dosage: 300 MG
     Route: 058
     Dates: start: 20170208
  2. SECUKINUMAB [Suspect]
     Active Substance: SECUKINUMAB
     Dosage: 150 MG
     Route: 058
     Dates: start: 20170219
  3. SECUKINUMAB [Suspect]
     Active Substance: SECUKINUMAB
     Dosage: 150 MG
     Route: 058
     Dates: start: 20170314
  4. SECUKINUMAB [Suspect]
     Active Substance: SECUKINUMAB
     Dosage: 150 MG
     Route: 058
     Dates: start: 20170523, end: 20170523
  5. SECUKINUMAB [Suspect]
     Active Substance: SECUKINUMAB
     Dosage: 300 MG
     Route: 058
     Dates: start: 20171017
  6. SECUKINUMAB [Suspect]
     Active Substance: SECUKINUMAB
     Dosage: 150 MG, QMO
     Route: 058
  7. SECUKINUMAB [Suspect]
     Active Substance: SECUKINUMAB
     Dosage: UNK
     Route: 058
     Dates: start: 20171118
  8. SECUKINUMAB [Suspect]
     Active Substance: SECUKINUMAB
     Dosage: UNK
     Route: 058
     Dates: start: 201712
  9. SECUKINUMAB [Suspect]
     Active Substance: SECUKINUMAB
     Dosage: 150 MG
     Route: 058
     Dates: start: 20180416
  10. SECUKINUMAB [Suspect]
     Active Substance: SECUKINUMAB
     Dosage: UNK
     Route: 058
     Dates: start: 20190907
  11. SECUKINUMAB [Suspect]
     Active Substance: SECUKINUMAB
     Dosage: 300 MG, Q2W
     Route: 058
     Dates: start: 20200113
  12. SECUKINUMAB [Suspect]
     Active Substance: SECUKINUMAB
     Dosage: 300 MG, Q2W
     Route: 058
     Dates: start: 20200124
  13. SECUKINUMAB [Suspect]
     Active Substance: SECUKINUMAB
     Dosage: 300 MG, Q2W
     Route: 058
     Dates: start: 20200718
  14. SECUKINUMAB [Suspect]
     Active Substance: SECUKINUMAB
     Dosage: 150 MG, QMO
     Route: 058
     Dates: start: 20201215
  15. SECUKINUMAB [Suspect]
     Active Substance: SECUKINUMAB
     Dosage: 300 MG, QMO
     Route: 058
     Dates: start: 20211026
  16. SECUKINUMAB [Suspect]
     Active Substance: SECUKINUMAB
     Dosage: 300 MG, QMO
     Route: 058
  17. SECUKINUMAB [Suspect]
     Active Substance: SECUKINUMAB
     Dosage: UNK
     Route: 065
     Dates: start: 20220607
  18. SECUKINUMAB [Suspect]
     Active Substance: SECUKINUMAB
     Dosage: 300 MG, Q2W (ONCE IN A 2 WEEKS FOR 4 WEEKS THEN 2 MORE MONTHLY)
     Route: 058
  19. SECUKINUMAB [Suspect]
     Active Substance: SECUKINUMAB
     Dosage: UNK
     Route: 065
     Dates: start: 20221018
  20. SECUKINUMAB [Suspect]
     Active Substance: SECUKINUMAB
     Dosage: UNK
     Route: 065
     Dates: start: 202211
  21. SECUKINUMAB [Suspect]
     Active Substance: SECUKINUMAB
     Dosage: 300 MG (ONCE IN A 2 WEEKS FOR 4 WEEKS THEN 2 MORE MONTHLY)
     Route: 058
     Dates: start: 20230119
  22. APRAZO [Concomitant]
     Indication: Product used for unknown indication
     Dosage: 30 MG, QD
     Route: 065
  23. GLYCOMET TRIO [Concomitant]
     Indication: Diabetes mellitus
     Dosage: 2 DOSAGE FORM, QD (1 TAB IN MORNING AND 1 TAB AT NIGHT)
     Route: 065
  24. CARBAMIDE PEROXIDE [Concomitant]
     Active Substance: CARBAMIDE PEROXIDE
     Indication: Hypertension
     Dosage: 300 MG, QD (1 CAPSULE)
     Route: 065
  25. CTD [Concomitant]
     Indication: Hypertension
     Dosage: 12.5 MG, QD (IN MORNING)
     Route: 065
  26. TELMA-H [Concomitant]
     Indication: Product used for unknown indication
     Dosage: UNK
     Route: 065
  27. TELMISARTAN [Concomitant]
     Active Substance: TELMISARTAN
     Indication: Product used for unknown indication
     Dosage: 40 MG (OT), BID
     Route: 065
  28. MINIPRESS [Concomitant]
     Active Substance: PRAZOSIN HYDROCHLORIDE
     Indication: Product used for unknown indication
     Dosage: UNK
     Route: 065
  29. TELSARTAN AM [Concomitant]
     Indication: Hypertension
     Dosage: 2 DF, QD (1 TAB IN MORNING AND 1 TAB AT NIGHT)
     Route: 065
  30. ASPIRIN\ATORVASTATIN [Concomitant]
     Active Substance: ASPIRIN\ATORVASTATIN
     Indication: Hypertension
     Dosage: 1 DOSAGE FORM (75), QD (AT NIGHT)
     Route: 065
  31. EUCERIN [Concomitant]
     Active Substance: ENSULIZOLE\EUCERIN\OCTINOXATE\OCTISALATE\TITANIUM DIOXIDE\ZINC OXIDE
     Indication: Skin lesion
     Dosage: UNK, QD (FULL BODY FOR SIX MONTHS)
     Route: 065
  32. EUCERIN [Concomitant]
     Active Substance: ENSULIZOLE\EUCERIN\OCTINOXATE\OCTISALATE\TITANIUM DIOXIDE\ZINC OXIDE
     Dosage: UNK, BID (UNK (MIX WITH HALOX AND APPLY CON AFFECTED PATCHES)
     Route: 065
  33. HALOBETASOL PROPIONATE [Concomitant]
     Active Substance: HALOBETASOL PROPIONATE
     Indication: Psoriasis
     Dosage: UNK, QD (ONCE AT NIGHT)
     Route: 065
  34. METHOTREXATE SODIUM [Concomitant]
     Active Substance: METHOTREXATE SODIUM
     Indication: Product used for unknown indication
     Dosage: 1 DOSAGE FORM, QW (AFTER BF) FOR 90 DAYS
     Route: 048
  35. FOLVITE [Concomitant]
     Active Substance: FOLIC ACID
     Indication: Product used for unknown indication
     Dosage: 1 DOSAGE FORM, QW  (SUN AFTER BF) FOR 90 DAYS
     Route: 048
  36. AZITHROMYCIN [Concomitant]
     Active Substance: AZITHROMYCIN
     Indication: Product used for unknown indication
     Dosage: 1 DOSAGE FORM, QD (AFTER BF) FOR 6 DAYS
     Route: 048
  37. HALOX [Concomitant]
     Indication: Product used for unknown indication
     Dosage: UNK, BID (UNK (MIX WITH EUCERIN AND APPLY CON AFFECTED PATCHES)
     Route: 065

REACTIONS (12)
  - Blood pressure fluctuation [Unknown]
  - Chest pain [Unknown]
  - Spinal deformity [Unknown]
  - Coronary artery occlusion [Unknown]
  - Cardiac disorder [Unknown]
  - Calcinosis [Unknown]
  - Hyperhidrosis [Unknown]
  - Pain [Unknown]
  - Scar [Unknown]
  - Skin exfoliation [Unknown]
  - Inappropriate schedule of product administration [Unknown]
  - Product dose omission issue [Unknown]

NARRATIVE: CASE EVENT DATE: 20171017
